FAERS Safety Report 13401648 (Version 7)
Quarter: 2017Q3

REPORT INFORMATION
  Report Type: Report from Study
  Country: US (occurrence: US)
  Receive Date: 20170404
  Receipt Date: 20170828
  Transmission Date: 20171127
  Serious: No
  Sender: FDA-Public Use
  Company Number: PHEH2017US009772

PATIENT
  Age: 53 Year
  Sex: Female

DRUGS (2)
  1. GILENYA [Suspect]
     Active Substance: FINGOLIMOD HYDROCHLORIDE
     Indication: MULTIPLE SCLEROSIS
     Dosage: 0.5 MG, QD
     Route: 048
     Dates: start: 20170329
  2. GILENYA [Suspect]
     Active Substance: FINGOLIMOD HYDROCHLORIDE
     Dosage: 0.5 MG, QOD
     Route: 048

REACTIONS (19)
  - Headache [Unknown]
  - Lethargy [Unknown]
  - Fatigue [Unknown]
  - Malaise [Unknown]
  - Dysgraphia [Unknown]
  - Multiple sclerosis relapse [Unknown]
  - Prescribed underdose [Unknown]
  - Contusion [Unknown]
  - Anxiety disorder [Unknown]
  - Disturbance in attention [Unknown]
  - Skin exfoliation [Unknown]
  - Somnolence [Unknown]
  - Confusional state [Unknown]
  - Feeling abnormal [Unknown]
  - Weight decreased [Unknown]
  - Hypoacusis [Unknown]
  - Injury [Unknown]
  - Gait disturbance [Unknown]
  - Nervous system disorder [Unknown]

NARRATIVE: CASE EVENT DATE: 20170331
